FAERS Safety Report 8011262-6 (Version None)
Quarter: 2011Q4

REPORT INFORMATION
  Report Type: 
  Country: None (occurrence: None)
  Receive Date: 20111227
  Receipt Date: 20111227
  Transmission Date: 20120403
  Serious: Yes (Life-Threatening, Hospitalization)
  Sender: FDA-Public Use
  Company Number: None

PATIENT
  Age: 22 Year
  Sex: Male
  Weight: 77.11 kg

DRUGS (1)
  1. LARIAM [Suspect]
     Indication: MALARIA PROPHYLAXIS
     Dosage: 20MG
     Route: 048
     Dates: start: 19910701, end: 19920120

REACTIONS (7)
  - ABNORMAL DREAMS [None]
  - BIPOLAR DISORDER [None]
  - COLD SWEAT [None]
  - MENTAL DISORDER [None]
  - INSOMNIA [None]
  - HALLUCINATION [None]
  - MAJOR DEPRESSION [None]
